FAERS Safety Report 19574748 (Version 2)
Quarter: 2021Q4

REPORT INFORMATION
  Report Type: Spontaneous
  Country: US (occurrence: US)
  Receive Date: 20210719
  Receipt Date: 20211104
  Transmission Date: 20220303
  Serious: No
  Sender: FDA-Public Use
  Company Number: US-GILEAD-2021-0540499

PATIENT
  Age: 44 Year
  Sex: Female

DRUGS (3)
  1. TRUVADA [Suspect]
     Active Substance: EMTRICITABINE\TENOFOVIR DISOPROXIL FUMARATE
     Indication: HIV infection
     Dosage: UNK
     Route: 048
     Dates: start: 2008, end: 2016
  2. TRUVADA [Suspect]
     Active Substance: EMTRICITABINE\TENOFOVIR DISOPROXIL FUMARATE
     Dosage: UNK
     Route: 048
     Dates: start: 200408, end: 2018
  3. GENVOYA [Concomitant]
     Active Substance: COBICISTAT\ELVITEGRAVIR\EMTRICITABINE\TENOFOVIR ALAFENAMIDE FUMARATE

REACTIONS (10)
  - Bone loss [Not Recovered/Not Resolved]
  - Tooth loss [Not Recovered/Not Resolved]
  - Bone density abnormal [Unknown]
  - Pain [Unknown]
  - Emotional distress [Unknown]
  - Anxiety [Unknown]
  - Anhedonia [Unknown]
  - Upper limb fracture [Recovered/Resolved]
  - Ankle fracture [Recovered/Resolved]
  - Spinal stenosis [Not Recovered/Not Resolved]

NARRATIVE: CASE EVENT DATE: 20080101
